FAERS Safety Report 18381117 (Version 1)
Quarter: 2020Q4

REPORT INFORMATION
  Report Type: Spontaneous
  Country: US (occurrence: US)
  Receive Date: 20201013
  Receipt Date: 20201013
  Transmission Date: 20210114
  Serious: Yes (Hospitalization)
  Sender: FDA-Public Use
  Company Number: None

PATIENT
  Age: 68 Year
  Sex: Male
  Weight: 69.9 kg

DRUGS (1)
  1. CARBOPLATIN 60 ML VIAL [Suspect]
     Active Substance: CARBOPLATIN
     Indication: NASOPHARYNGEAL CANCER
     Dosage: OTHER FREQUENCY:EVERY 21 DAYS;?
     Route: 042
     Dates: start: 20200622

REACTIONS (5)
  - Flushing [None]
  - Headache [None]
  - Swollen tongue [None]
  - Retching [None]
  - Lip swelling [None]

NARRATIVE: CASE EVENT DATE: 20201012
